FAERS Safety Report 23111234 (Version 2)
Quarter: 2025Q1

REPORT INFORMATION
  Report Type: Spontaneous
  Country: IT (occurrence: IT)
  Receive Date: 20231026
  Receipt Date: 20250127
  Transmission Date: 20250409
  Serious: Yes (Other)
  Sender: JAZZ
  Company Number: IT-JAZZ-2021-IT-014510

PATIENT
  Age: 46 Year
  Sex: Male

DRUGS (1)
  1. DEFITELIO [Suspect]
     Active Substance: DEFIBROTIDE SODIUM
     Indication: Venoocclusive disease

REACTIONS (3)
  - Melaena [Unknown]
  - Rectal haemorrhage [Unknown]
  - Off label use [Unknown]
